FAERS Safety Report 5814720-5 (Version None)
Quarter: 2008Q3

REPORT INFORMATION
  Report Type: 
  Country: None (occurrence: None)
  Receive Date: 20080718
  Receipt Date: 20080521
  Transmission Date: 20090109
  Serious: No
  Sender: FDA-Public Use
  Company Number: US-KINGPHARMUSA00001-K200800583

PATIENT

DRUGS (4)
  1. LEVOXYL [Suspect]
     Indication: BASEDOW'S DISEASE
     Dosage: .62 ^MG^, QD
     Route: 048
     Dates: start: 20011001
  2. LEVOXYL [Suspect]
     Dosage: .75 ^MG^, QD
     Route: 048
     Dates: start: 20080501
  3. CALCIUM [Suspect]
     Indication: OSTEOPOROSIS
     Dosage: UNK, UNK
     Route: 048
     Dates: start: 20070101, end: 20080501
  4. BIOTIN [Concomitant]
     Indication: ALOPECIA

REACTIONS (3)
  - ALOPECIA [None]
  - BLOOD THYROID STIMULATING HORMONE DECREASED [None]
  - OSTEOPOROSIS [None]
